FAERS Safety Report 7761343-7 (Version None)
Quarter: 2011Q3

REPORT INFORMATION
  Report Type: 
  Country: None (occurrence: None)
  Receive Date: 20110920
  Receipt Date: 20110914
  Transmission Date: 20111222
  Serious: No
  Sender: FDA-Public Use
  Company Number: US-PFIZER INC-2011217923

PATIENT
  Sex: Female
  Weight: 68.9 kg

DRUGS (6)
  1. PRAVACHOL [Concomitant]
     Indication: BLOOD CHOLESTEROL INCREASED
     Dosage: 40 MG, UNK
     Dates: start: 20110901
  2. GENOTROPIN [Suspect]
     Indication: GROWTH HORMONE DEFICIENCY
     Dosage: 0.4 MG, 1X/DAY
     Dates: start: 20110901
  3. CELEXA [Concomitant]
     Indication: DEPRESSION
     Dosage: 20 MG, 1X/DAY
  4. PRILOSEC [Concomitant]
     Indication: IRRITABLE BOWEL SYNDROME
     Dosage: UNK
  5. VITAMIN D [Concomitant]
     Indication: VITAMIN D DEFICIENCY
     Dosage: 1000 IU, UNK
  6. FLONASE [Concomitant]
     Indication: HYPERSENSITIVITY
     Dosage: UNK
     Route: 045

REACTIONS (2)
  - MALAISE [None]
  - FATIGUE [None]
